FAERS Safety Report 9239071 (Version 1)
Quarter: 2013Q2

REPORT INFORMATION
  Report Type: Spontaneous
  Country: US (occurrence: US)
  Receive Date: 20130418
  Receipt Date: 20130418
  Transmission Date: 20140414
  Serious: Yes (Other)
  Sender: FDA-Public Use
  Company Number: US-JNJFOC-20130405640

PATIENT
  Sex: Male

DRUGS (7)
  1. XARELTO [Suspect]
     Indication: THROMBOSIS PROPHYLAXIS
     Route: 048
     Dates: start: 2013
  2. XARELTO [Suspect]
     Indication: THROMBOSIS PROPHYLAXIS
     Route: 048
     Dates: start: 2013, end: 2013
  3. XARELTO [Suspect]
     Indication: DEEP VEIN THROMBOSIS
     Route: 048
     Dates: start: 2013, end: 2013
  4. XARELTO [Suspect]
     Indication: DEEP VEIN THROMBOSIS
     Route: 048
     Dates: start: 2013
  5. XARELTO [Suspect]
     Indication: SURGERY
     Route: 048
     Dates: start: 2013
  6. XARELTO [Suspect]
     Indication: SURGERY
     Route: 048
     Dates: start: 2013, end: 2013
  7. AMICAR [Concomitant]
     Route: 065
     Dates: end: 2013

REACTIONS (1)
  - Deep vein thrombosis [Unknown]
